FAERS Safety Report 26137789 (Version 1)
Quarter: 2025Q4

REPORT INFORMATION
  Report Type: Spontaneous
  Country: CN (occurrence: CN)
  Receive Date: 20251209
  Receipt Date: 20251209
  Transmission Date: 20260118
  Serious: Yes (Other)
  Sender: BAXTER
  Company Number: None

PATIENT
  Age: 62 Year
  Sex: Female
  Weight: 51.25 kg

DRUGS (8)
  1. CYCLOPHOSPHAMIDE [Suspect]
     Active Substance: CYCLOPHOSPHAMIDE
     Indication: Plasma cell myeloma
     Dosage: 0.6 G, QD + 100 ML NS
     Route: 041
     Dates: start: 20251116, end: 20251117
  2. CYCLOPHOSPHAMIDE [Suspect]
     Active Substance: CYCLOPHOSPHAMIDE
     Dosage: 0.4 G, QD + 100 ML NS
     Route: 041
     Dates: start: 20251123, end: 20251124
  3. SODIUM CHLORIDE [Suspect]
     Active Substance: SODIUM CHLORIDE
     Dosage: 100 ML, QD + CYCLOPHOSPHAMIDE FOR INJECTION 0.6 G
     Route: 041
     Dates: start: 20251116, end: 20251117
  4. SODIUM CHLORIDE [Suspect]
     Active Substance: SODIUM CHLORIDE
     Dosage: 2 ML, QD ST + BORTEZOMIB FOR INJECTION 2 MG
     Route: 058
     Dates: start: 20251117, end: 20251117
  5. SODIUM CHLORIDE [Suspect]
     Active Substance: SODIUM CHLORIDE
     Dosage: 2 ML, QD ST + BORTEZOMIB FOR INJECTION 2 MG
     Route: 058
     Dates: start: 20251120, end: 20251120
  6. SODIUM CHLORIDE [Suspect]
     Active Substance: SODIUM CHLORIDE
     Dosage: 100 ML, QD + CYCLOPHOSPHAMIDE FOR INJECTION 0.4 G
     Route: 041
     Dates: start: 20251123, end: 20251124
  7. BORTEZOMIB [Suspect]
     Active Substance: BORTEZOMIB
     Indication: Plasma cell myeloma
     Dosage: 2 MG, QD + 2 ML NS ST
     Route: 058
     Dates: start: 20251117, end: 20251117
  8. BORTEZOMIB [Suspect]
     Active Substance: BORTEZOMIB
     Dosage: 2 MG, QD + 2 ML NS ST
     Route: 058
     Dates: start: 20251120, end: 20251120

REACTIONS (4)
  - Myelosuppression [Recovered/Resolved]
  - White blood cell count decreased [Recovering/Resolving]
  - Neutrophil count decreased [Recovering/Resolving]
  - Platelet count decreased [Recovering/Resolving]

NARRATIVE: CASE EVENT DATE: 20251123
